FAERS Safety Report 24613776 (Version 1)
Quarter: 2024Q4

REPORT INFORMATION
  Report Type: Spontaneous
  Country: US (occurrence: None)
  Receive Date: 20241113
  Receipt Date: 20241113
  Transmission Date: 20250114
  Serious: Yes (Other)
  Sender: Public
  Company Number: None

PATIENT
  Age: 36 Year
  Sex: Female
  Weight: 61.8 kg

DRUGS (4)
  1. INFED [Suspect]
     Active Substance: IRON DEXTRAN
     Indication: Iron deficiency anaemia
     Dosage: OTHER FREQUENCY : ONCE;?
     Route: 042
     Dates: start: 20241107, end: 20241107
  2. Acetylcysteine 600 mg  by mouth daily - 2 capsules AM, 1 capsule PM [Concomitant]
  3. Vitamin D2 1,250 mcg by mouth daily [Concomitant]
  4. Ferrous Sulfate 325 mg by mouth daily [Concomitant]

REACTIONS (5)
  - Swelling face [None]
  - Lip swelling [None]
  - Nausea [None]
  - Back pain [None]
  - Infusion related reaction [None]

NARRATIVE: CASE EVENT DATE: 20241107
